FAERS Safety Report 18298524 (Version 1)
Quarter: 2020Q3

REPORT INFORMATION
  Report Type: Spontaneous
  Country: RU (occurrence: RU)
  Receive Date: 20200922
  Receipt Date: 20200922
  Transmission Date: 20201103
  Serious: Yes (Other)
  Sender: FDA-Public Use
  Company Number: NVSC2020RU256466

PATIENT
  Age: 47 Year
  Sex: Female

DRUGS (2)
  1. RIBOCICLIB. [Suspect]
     Active Substance: RIBOCICLIB
     Indication: BREAST CANCER
     Dosage: UNK
     Route: 065
  2. LETROZOLE. [Concomitant]
     Active Substance: LETROZOLE
     Indication: PRODUCT USED FOR UNKNOWN INDICATION
     Dosage: UNK
     Route: 065

REACTIONS (8)
  - Dyspepsia [Unknown]
  - Disseminated intravascular coagulation [Unknown]
  - Malignant neoplasm progression [Unknown]
  - Nephropathy [Unknown]
  - Breast cancer [Unknown]
  - Liver disorder [Unknown]
  - Asthenia [Unknown]
  - Metastases to liver [Unknown]

NARRATIVE: CASE EVENT DATE: 202007
